FAERS Safety Report 7386913-X (Version None)
Quarter: 2011Q1

REPORT INFORMATION
  Report Type: 
  Country: None (occurrence: None)
  Receive Date: 20110331
  Receipt Date: 20110321
  Transmission Date: 20110831
  Serious: Yes (Other)
  Sender: FDA-Public Use
  Company Number: US-EISAI INC-E3810-04556-SPO-US

PATIENT
  Sex: Male
  Weight: 64 kg

DRUGS (5)
  1. CELEBREX [Concomitant]
     Indication: ARTHRITIS
     Dosage: UNKNOWN
     Route: 048
     Dates: start: 20000101
  2. HYDROCHLOROTHIAZIDE [Concomitant]
     Route: 048
  3. SIMPONI [Suspect]
     Indication: ANKYLOSING SPONDYLITIS
     Route: 058
     Dates: start: 20110320
  4. ACIPHEX [Suspect]
     Indication: GASTRIC DISORDER
     Dosage: UNKNOWN
     Route: 048
     Dates: start: 20060101
  5. TEMAZEPAM [Concomitant]
     Dosage: UNKNOWN
     Route: 048

REACTIONS (1)
  - HERPES ZOSTER [None]
